FAERS Safety Report 21249720 (Version 1)
Quarter: 2022Q3

REPORT INFORMATION
  Report Type: Spontaneous
  Country: US (occurrence: None)
  Receive Date: 20220823
  Receipt Date: 20220823
  Transmission Date: 20221026
  Serious: Yes (Death)
  Sender: FDA-Public Use
  Company Number: None

PATIENT
  Age: 90 Year
  Sex: Male
  Weight: 79.83 kg

DRUGS (9)
  1. ANAGRELIDE. [Suspect]
     Active Substance: ANAGRELIDE HYDROCHLORIDE
     Indication: Essential thrombocythaemia
     Dosage: FREQUENCY : TWICE A DAY;?
     Route: 048
  2. ANAGRELIDE. [Suspect]
     Active Substance: ANAGRELIDE HYDROCHLORIDE
     Indication: Essential thrombocythaemia
  3. ANAGRELIDE HYDROCHLORIDE [Concomitant]
     Active Substance: ANAGRELIDE HYDROCHLORIDE
  4. ASPIRIN [Concomitant]
     Active Substance: ASPIRIN
  5. COUMADIN [Concomitant]
     Active Substance: WARFARIN SODIUM
  6. FERROUS SULFATE [Suspect]
     Active Substance: FERROUS SULFATE
  7. HYDREA [Suspect]
     Active Substance: HYDROXYUREA
  8. METOPROLOL TARTRATE [Suspect]
     Active Substance: METOPROLOL TARTRATE
  9. PREDNISONE [Suspect]
     Active Substance: PREDNISONE

REACTIONS (1)
  - Death [None]
